FAERS Safety Report 24948616 (Version 1)
Quarter: 2025Q1

REPORT INFORMATION
  Report Type: Spontaneous
  Country: US (occurrence: US)
  Receive Date: 20250210
  Receipt Date: 20250210
  Transmission Date: 20250409
  Serious: Yes (Hospitalization)
  Sender: ACCORD
  Company Number: US-Accord-467994

PATIENT
  Age: 68 Year
  Sex: Female

DRUGS (6)
  1. FLUOXETINE HYDROCHLORIDE [Interacting]
     Active Substance: FLUOXETINE HYDROCHLORIDE
     Indication: Schizophrenia
  2. CLOZAPINE [Interacting]
     Active Substance: CLOZAPINE
     Indication: Schizophrenia
     Dosage: 12.5 MG ON DAY 1, 25 MG ON DAY 2, 50 MG ON DAY 3, 75 MG ON DAY 4, 100 MG FROM
  3. METOPROLOL SUCCINATE [Interacting]
     Active Substance: METOPROLOL SUCCINATE
     Indication: Hypertension
  4. RISPERIDONE [Interacting]
     Active Substance: RISPERIDONE
     Indication: Schizophrenia
     Dosage: DIVIDED 4 MG IN THE MORNING AND 8 MG IN THE EVENING; TILL DAY-2 OF CROSS-TITRATION
  5. TRAZODONE [Concomitant]
     Active Substance: TRAZODONE HYDROCHLORIDE
     Indication: Schizophrenia
     Dosage: NIGHTLY
  6. RISPERIDONE [Interacting]
     Active Substance: RISPERIDONE
     Indication: Schizophrenia
     Dosage: 4 MG ON DAY 3 AND 4, 3 MG ON DAY 5 TO DAY 9, 2 MG ON DAY 10, BID?1 MG ON DAY 11, 0.5 MG ON DAY 12

REACTIONS (3)
  - Orthostatic hypotension [Unknown]
  - Drug interaction [Unknown]
  - Antipsychotic drug level increased [Recovered/Resolved]
